FAERS Safety Report 9688863 (Version 1)
Quarter: 2013Q4

REPORT INFORMATION
  Report Type: Spontaneous
  Country: US (occurrence: US)
  Receive Date: 20131114
  Receipt Date: 20131114
  Transmission Date: 20140711
  Serious: No
  Sender: FDA-Public Use
  Company Number: US-BAYER-2013-138577

PATIENT
  Age: 72 Year
  Sex: Male
  Weight: 79.37 kg

DRUGS (3)
  1. ALEVE TABLET [Suspect]
     Indication: ARTHRITIS
     Dosage: 2 DF, BID
     Route: 048
     Dates: start: 201308, end: 201309
  2. LYRICA [Concomitant]
     Dosage: UNK
  3. HYDROCODONE [Concomitant]
     Dosage: UNK

REACTIONS (2)
  - Urticaria [Recovered/Resolved]
  - Extra dose administered [None]
